FAERS Safety Report 13369346 (Version 1)
Quarter: 2017Q1

REPORT INFORMATION
  Report Type: Spontaneous
  Country: ES (occurrence: ES)
  Receive Date: 20170324
  Receipt Date: 20170324
  Transmission Date: 20170429
  Serious: Yes (Death, Hospitalization, Other)
  Sender: FDA-Public Use
  Company Number: ES-GLAXOSMITHKLINE-ES2017GSK040650

PATIENT
  Age: 11 Year
  Sex: Female

DRUGS (2)
  1. IBUPROFEN. [Concomitant]
     Active Substance: IBUPROFEN
     Indication: PAIN
  2. LAMOTRIGINE. [Suspect]
     Active Substance: LAMOTRIGINE
     Indication: SEIZURE
     Dosage: 25 MG IN THE MORNING AND 50 MG AT NIGHT TO

REACTIONS (5)
  - Pyrexia [Unknown]
  - Cardio-respiratory arrest [Fatal]
  - Rash generalised [Unknown]
  - Toxic epidermal necrolysis [Fatal]
  - Septic shock [Fatal]
